FAERS Safety Report 19918898 (Version 1)
Quarter: 2021Q4

REPORT INFORMATION
  Report Type: Spontaneous
  Country: US (occurrence: US)
  Receive Date: 20211004
  Receipt Date: 20211004
  Transmission Date: 20220303
  Serious: No
  Sender: FDA-Public Use
  Company Number: US-VIFOR (INTERNATIONAL) INC.-VIT-2021-07383

PATIENT
  Sex: Male

DRUGS (2)
  1. VELTASSA [Suspect]
     Active Substance: PATIROMER
     Indication: Hyperkalaemia
     Route: 048
     Dates: start: 202108
  2. INSULIN NOS [Concomitant]
     Active Substance: INSULIN NOS

REACTIONS (1)
  - Blood glucose decreased [Unknown]

NARRATIVE: CASE EVENT DATE: 20210801
